FAERS Safety Report 8844542 (Version 2)
Quarter: 2013Q1

REPORT INFORMATION
  Report Type: Spontaneous
  Country: DE (occurrence: None)
  Receive Date: 20121012
  Receipt Date: 20121031
  Transmission Date: 20140127
  Serious: Yes (Other)
  Sender: FDA-Public Use
  Company Number: DE-1194515

PATIENT
  Age: 71 Year
  Sex: Female

DRUGS (3)
  1. AZOPT 1% [Suspect]
     Indication: INTRAOCULAR PRESSURE INCREASED
     Route: 047
  2. CLONIDINE [Suspect]
     Indication: INTRAOCULAR PRESSURE INCREASED
     Route: 047
  3. LATANOPROST [Suspect]
     Indication: INTRAOCULAR PRESSURE INCREASED
     Route: 047

REACTIONS (6)
  - Suicidal ideation [None]
  - Enophthalmos [None]
  - Periorbital fat atrophy [None]
  - Visual field defect [None]
  - Tunnel vision [None]
  - Muscle atrophy [None]
